FAERS Safety Report 5558031-4 (Version None)
Quarter: 2007Q4

REPORT INFORMATION
  Report Type: 
  Country: None (occurrence: None)
  Receive Date: 20071214
  Receipt Date: 20071204
  Transmission Date: 20080405
  Serious: Yes (Other)
  Sender: FDA-Public Use
  Company Number: PT-RANBAXY-2007US-11954

PATIENT

DRUGS (4)
  1. ISOPTIN SR [Suspect]
     Indication: HYPERTENSION
     Dosage: 240MG, UNK
     Dates: start: 20030101
  2. ETORICOXIB [Suspect]
     Indication: ARTHROPATHY
     Dosage: 90MG, QD
     Dates: start: 20070216, end: 20070314
  3. IRBESARTAN [Suspect]
     Indication: HYPERTENSION
     Dosage: 300MG, UNK
  4. CHORATALIDONE [Suspect]
     Indication: HYPERTENSION
     Dosage: 50MG, UNK

REACTIONS (2)
  - DRUG INTERACTION [None]
  - HYPERTENSIVE CRISIS [None]
